FAERS Safety Report 4784859-4 (Version None)
Quarter: 2005Q3

REPORT INFORMATION
  Report Type: 
  Country: None (occurrence: None)
  Receive Date: 20050929
  Receipt Date: 20050929
  Transmission Date: 20060218
  Serious: Yes (Life-Threatening)
  Sender: FDA-Public Use
  Company Number: None

PATIENT
  Sex: Male
  Weight: 118.2 kg

DRUGS (4)
  1. LOPERAMIDE [Suspect]
     Indication: DIARRHOEA
     Dosage: 2 MG PRN LOOSE STOOL
  2. ACIPHEX [Concomitant]
  3. LIPITOR [Concomitant]
  4. ASPIRIN [Concomitant]

REACTIONS (9)
  - ANGIONEUROTIC OEDEMA [None]
  - BLOOD PRESSURE SYSTOLIC DECREASED [None]
  - BURNING SENSATION [None]
  - DIZZINESS [None]
  - PALLOR [None]
  - RASH GENERALISED [None]
  - RASH PRURITIC [None]
  - SWELLING FACE [None]
  - VOMITING [None]
